FAERS Safety Report 5377182-0 (Version None)
Quarter: 2007Q3

REPORT INFORMATION
  Report Type: 
  Country: None (occurrence: None)
  Receive Date: 20070703
  Receipt Date: 20070622
  Transmission Date: 20080115
  Serious: Yes (Hospitalization, Other)
  Sender: FDA-Public Use
  Company Number: US-ELI_LILLY_AND_COMPANY-US200706005311

PATIENT
  Sex: Male

DRUGS (10)
  1. HUMALOG [Suspect]
     Indication: DIABETES MELLITUS
     Dosage: SLIDING SCALE
     Dates: start: 19970101
  2. ACTOS [Concomitant]
     Indication: DIABETES MELLITUS
     Dosage: 15 MG, DAILY (1/D)
  3. PLAVIX [Concomitant]
     Indication: CARDIOVASCULAR DISORDER
     Dosage: 75 MG, DAILY (1/D)
  4. FOLIC ACID [Concomitant]
     Dosage: UNK, DAILY (1/D)
  5. LANTUS [Concomitant]
     Indication: DIABETES MELLITUS
     Dosage: 38 U, EACH EVENING
  6. LYRICA [Concomitant]
     Dosage: UNK, DAILY (1/D)
  7. TRICOR [Concomitant]
     Dosage: 48 MG, UNK
  8. ZETIA [Concomitant]
     Dosage: 10 MG, UNK
  9. LISINOPRIL [Concomitant]
     Dosage: 15 MG, UNK
  10. TOPROL-XL [Concomitant]
     Dosage: 50 MG, UNK

REACTIONS (7)
  - BLOOD GLUCOSE INCREASED [None]
  - CAROTID ARTERY STENT INSERTION [None]
  - CAROTID ENDARTERECTOMY [None]
  - CORONARY ARTERIAL STENT INSERTION [None]
  - CORONARY ARTERY BYPASS [None]
  - RENAL ARTERY STENT PLACEMENT [None]
  - SLEEP APNOEA SYNDROME [None]
